FAERS Safety Report 25949126 (Version 1)
Quarter: 2025Q4

REPORT INFORMATION
  Report Type: Spontaneous
  Country: US (occurrence: None)
  Receive Date: 20251022
  Receipt Date: 20251022
  Transmission Date: 20260117
  Serious: No
  Sender: FDA-CTU
  Company Number: None

PATIENT

DRUGS (1)
  1. PIRFENIDONE [Suspect]
     Active Substance: PIRFENIDONE

REACTIONS (7)
  - Headache [None]
  - Asthenia [None]
  - Dehydration [None]
  - Hypophagia [None]
  - Nausea [None]
  - Vomiting [None]
  - Insomnia [None]
